FAERS Safety Report 6804353 (Version 4)
Quarter: 2012Q4

REPORT INFORMATION
  Report Type: 
  Country: US (occurrence: US)
  Receive Date: 20081105
  Receipt Date: 20121008
  Transmission Date: 20130627
  Serious: Yes (Hospitalization)
  Sender: FDA-Public Use
  Company Number: US-B.I. PHARMACEUTICALS,INC./RIDGEFIELD-2008-BP-16483BP

PATIENT
  Age: 69 None
  Sex: Female

DRUGS (14)
  1. SPIRIVA HANDIHALER [Suspect]
     Indication: CHRONIC OBSTRUCTIVE PULMONARY DISEASE
     Dosage: 18 mcg
     Route: 055
     Dates: start: 200808
  2. SPIRIVA HANDIHALER [Suspect]
     Dosage: 18 mcg
     Route: 055
     Dates: start: 201206
  3. DIOVAN [Concomitant]
     Indication: HYPERTENSION
     Dosage: 320 mg
     Dates: start: 2003
  4. TEKTURNA [Concomitant]
     Indication: HYPERTENSION
     Dosage: 150 mg
     Dates: start: 2003
  5. COREG [Concomitant]
     Indication: CARDIAC DISORDER
  6. PRILOSEC [Concomitant]
     Indication: GASTROOESOPHAGEAL REFLUX DISEASE
     Dosage: 40 mg
  7. FUROSEMIDE [Concomitant]
     Indication: CARDIAC DISORDER
  8. FUROSEMIDE [Concomitant]
     Indication: BLOOD PRESSURE
  9. STOOL SOFTENER [Concomitant]
  10. FISH OIL [Concomitant]
  11. BENICAR [Concomitant]
     Indication: HYPERTENSION
     Dosage: 40 mg
     Route: 048
     Dates: start: 201206
  12. METOPROLOL [Concomitant]
     Indication: HYPERTENSION
     Dosage: 25 mg
     Route: 048
     Dates: start: 201206
  13. AMLODIPINE [Concomitant]
     Indication: HYPERTENSION
     Route: 048
     Dates: start: 201206
  14. TYLENOL [Concomitant]
     Indication: PAIN IN EXTREMITY
     Route: 048

REACTIONS (27)
  - Myocardial infarction [Recovered/Resolved]
  - Myocardial infarction [Recovered/Resolved]
  - Blood pressure decreased [Recovered/Resolved]
  - Eye pruritus [Not Recovered/Not Resolved]
  - Pain [Not Recovered/Not Resolved]
  - Myalgia [Not Recovered/Not Resolved]
  - Pain in extremity [Not Recovered/Not Resolved]
  - Chest discomfort [Not Recovered/Not Resolved]
  - Oropharyngeal pain [Not Recovered/Not Resolved]
  - Nervousness [Not Recovered/Not Resolved]
  - Dry mouth [Not Recovered/Not Resolved]
  - Respiratory tract congestion [Not Recovered/Not Resolved]
  - Myalgia [Not Recovered/Not Resolved]
  - Nodule [Not Recovered/Not Resolved]
  - Joint lock [Not Recovered/Not Resolved]
  - Osteoarthritis [Not Recovered/Not Resolved]
  - Pain in extremity [Not Recovered/Not Resolved]
  - Sleep disorder [Not Recovered/Not Resolved]
  - Asthma [Not Recovered/Not Resolved]
  - Urinary tract infection [Recovered/Resolved]
  - Limb discomfort [Not Recovered/Not Resolved]
  - Myalgia [Not Recovered/Not Resolved]
  - Gait disturbance [Not Recovered/Not Resolved]
  - Nasal congestion [Not Recovered/Not Resolved]
  - Fatigue [Not Recovered/Not Resolved]
  - Dry mouth [Not Recovered/Not Resolved]
  - Epistaxis [Recovered/Resolved]
